FAERS Safety Report 24566515 (Version 3)
Quarter: 2025Q1

REPORT INFORMATION
  Report Type: Spontaneous
  Country: IN (occurrence: IN)
  Receive Date: 20241030
  Receipt Date: 20250116
  Transmission Date: 20250409
  Serious: Yes (Death, Life-Threatening, Hospitalization, Other)
  Sender: PFIZER
  Company Number: IN-PFIZER INC-PV202400071570

PATIENT
  Age: 65 Year
  Sex: Female
  Weight: 70 kg

DRUGS (8)
  1. LORLATINIB [Suspect]
     Active Substance: LORLATINIB
     Indication: Lung adenocarcinoma
     Dosage: 75 MG, OD (ONCE A DAY) (0-1-0), AFTER MEALS
     Route: 048
     Dates: start: 20240529, end: 20240627
  2. LORLATINIB [Suspect]
     Active Substance: LORLATINIB
     Dosage: 100 MG, 1X/DAY (0-1-0)
     Route: 048
     Dates: start: 20240628, end: 20240818
  3. LORLATINIB [Suspect]
     Active Substance: LORLATINIB
     Dosage: 50 MG, 1X/DAY
     Route: 048
     Dates: start: 20241022
  4. LORLATINIB [Suspect]
     Active Substance: LORLATINIB
     Dosage: 50 MG, ALTERNATE DAY (X 1 WEEK)
     Route: 048
     Dates: start: 2024, end: 2024
  5. PRODEP [FLUOXETINE HYDROCHLORIDE] [Concomitant]
     Indication: Schizophrenia
     Dosage: 10 MG, 1X/DAY
  6. Roze Plus [Concomitant]
     Indication: Schizophrenia
     Dosage: 1.5 DF, 2X/DAY
  7. Ciprex-C [Concomitant]
     Indication: Schizophrenia
     Dosage: 1 DF, 1X/DAY (HS)
  8. PLACIDA [Concomitant]
     Indication: Schizophrenia
     Dosage: 0.5 DF, 1X/DAY

REACTIONS (12)
  - Death [Fatal]
  - Pneumonia aspiration [Recovered/Resolved]
  - Hypoxia [Recovered/Resolved]
  - Posterior reversible encephalopathy syndrome [Recovered/Resolved]
  - Fatigue [Recovered/Resolved]
  - Fall [Unknown]
  - Multisystem inflammatory syndrome in adults [Unknown]
  - Spinal cord compression [Unknown]
  - Vision blurred [Recovered/Resolved]
  - Back pain [Recovering/Resolving]
  - Neoplasm progression [Unknown]
  - Off label use [Unknown]

NARRATIVE: CASE EVENT DATE: 20240101
